FAERS Safety Report 16480371 (Version 1)
Quarter: 2019Q2

REPORT INFORMATION
  Report Type: Spontaneous
  Country: JP (occurrence: JP)
  Receive Date: 20190626
  Receipt Date: 20190626
  Transmission Date: 20190711
  Serious: Yes (Other)
  Sender: FDA-Public Use
  Company Number: JP-EISAI MEDICAL RESEARCH-EC-2019-058091

PATIENT
  Age: 53 Year
  Sex: Female

DRUGS (2)
  1. TOREMIFENE [Concomitant]
     Active Substance: TOREMIFENE
     Indication: PRODUCT USED FOR UNKNOWN INDICATION
     Dosage: DOSAGE AND FREQUENCY UNKNOWN
  2. ERIBULIN [Suspect]
     Active Substance: ERIBULIN
     Indication: BREAST CANCER
     Dosage: DOSAGE UNKNOWN
     Route: 041

REACTIONS (1)
  - Haemorrhage [Unknown]
